FAERS Safety Report 25148264 (Version 1)
Quarter: 2025Q2

REPORT INFORMATION
  Report Type: Spontaneous
  Country: EC (occurrence: EC)
  Receive Date: 20250402
  Receipt Date: 20250402
  Transmission Date: 20250717
  Serious: Yes (Other)
  Sender: ROCHE
  Company Number: EC-ROCHE-10000240708

PATIENT
  Sex: Female

DRUGS (6)
  1. TRASTUZUMAB [Suspect]
     Active Substance: TRASTUZUMAB
     Indication: HER2 positive breast cancer
     Route: 065
     Dates: start: 202205, end: 202209
  2. KADCYLA [Suspect]
     Active Substance: ADO-TRASTUZUMAB EMTANSINE
     Indication: HER2 positive breast cancer
     Route: 065
     Dates: start: 202307, end: 202407
  3. KADCYLA [Suspect]
     Active Substance: ADO-TRASTUZUMAB EMTANSINE
     Route: 065
     Dates: start: 202302, end: 202303
  4. DOXORUBICIN [Concomitant]
     Active Substance: DOXORUBICIN
     Indication: HER2 positive breast cancer
  5. CYCLOPHOSPHAMIDE [Concomitant]
     Active Substance: CYCLOPHOSPHAMIDE
     Indication: HER2 positive breast cancer
  6. PACLITAXEL [Concomitant]
     Active Substance: PACLITAXEL
     Indication: HER2 positive breast cancer

REACTIONS (10)
  - Vision blurred [Recovered/Resolved]
  - Radical mastectomy [Unknown]
  - Axillary mass [Unknown]
  - Breast reconstruction [Unknown]
  - Lymphoedema [Unknown]
  - Axillary lymphadenectomy [Unknown]
  - Empty sella syndrome [Unknown]
  - Paranasal cyst [Unknown]
  - Paranasal sinus inflammation [Unknown]
  - Surgical failure [Unknown]

NARRATIVE: CASE EVENT DATE: 20240501
